FAERS Safety Report 7967525-3 (Version None)
Quarter: 2011Q4

REPORT INFORMATION
  Report Type: 
  Country: None (occurrence: None)
  Receive Date: 20111209
  Receipt Date: 20111129
  Transmission Date: 20120403
  Serious: Yes (Death, Disabling)
  Sender: FDA-Public Use
  Company Number: JP-SANOFI-AVENTIS-2011SA079908

PATIENT
  Age: 70 Year
  Sex: Female

DRUGS (22)
  1. CARBOPLATIN [Concomitant]
  2. ALLOPURINOL [Concomitant]
     Dates: start: 20080107
  3. PROTECADIN [Concomitant]
     Dates: start: 20080107
  4. ALDACTONE [Concomitant]
     Dates: start: 20080107
  5. ALENDRONATE SODIUM [Concomitant]
     Dates: start: 20080124
  6. IFOSFAMIDE [Concomitant]
  7. FLUDARABINE PHOSPHATE [Suspect]
     Indication: NON-HODGKIN'S LYMPHOMA
     Route: 048
     Dates: start: 20080109, end: 20080113
  8. CYCLOPHOSPHAMIDE [Concomitant]
  9. ITRACONAZOLE [Concomitant]
     Dates: start: 20080107
  10. ETODOLAC [Concomitant]
     Dates: start: 20080108
  11. MORPHINE [Concomitant]
     Dates: start: 20080213, end: 20080219
  12. OXINORM [Concomitant]
     Dates: start: 20080212, end: 20080212
  13. PROCHLORPERAZINE [Concomitant]
     Dates: start: 20080212, end: 20080214
  14. DOXORUBICIN HCL [Concomitant]
  15. ETOPOSIDE [Concomitant]
  16. LASIX [Concomitant]
     Dates: start: 20080107
  17. MAGNESIUM SULFATE [Concomitant]
     Dates: start: 20080212, end: 20080214
  18. PREDNISOLONE [Concomitant]
  19. PENTAZOCINE LACTATE [Concomitant]
     Dates: start: 20080220
  20. VINCRISTINE [Concomitant]
  21. LENDORMIN [Concomitant]
     Dates: start: 20080219
  22. SULFAMETHOXAZOLE AND TRIMETHOPRIM [Concomitant]
     Dates: start: 20080107

REACTIONS (4)
  - NEUTROPHIL COUNT DECREASED [None]
  - RENAL IMPAIRMENT [None]
  - PLATELET COUNT DECREASED [None]
  - RENAL FAILURE [None]
